FAERS Safety Report 7296913-6 (Version None)
Quarter: 2011Q1

REPORT INFORMATION
  Report Type: 
  Country: None (occurrence: None)
  Receive Date: 20110216
  Receipt Date: 20110209
  Transmission Date: 20110831
  Serious: Yes (Hospitalization)
  Sender: FDA-Public Use
  Company Number: ES-JNJFOC-20110203842

PATIENT
  Age: 70 Year
  Sex: Female

DRUGS (3)
  1. ESERTIA [Interacting]
     Indication: DEPRESSION
     Route: 048
  2. IMIPRAMINE HYDROCHLORIDE [Interacting]
     Indication: DEPRESSION
     Route: 048
  3. RISPERDAL [Suspect]
     Indication: DEMENTIA
     Route: 048

REACTIONS (3)
  - DRUG INTERACTION [None]
  - PARKINSONISM [None]
  - CONFUSIONAL STATE [None]
